FAERS Safety Report 21157484 (Version 1)
Quarter: 2022Q3

REPORT INFORMATION
  Report Type: Spontaneous
  Country: US (occurrence: None)
  Receive Date: 20220730
  Receipt Date: 20220730
  Transmission Date: 20221026
  Serious: No
  Sender: FDA-Public Use
  Company Number: None

PATIENT
  Age: 33 Year
  Sex: Male
  Weight: 79.2 kg

DRUGS (1)
  1. LEVOFLOXACIN [Suspect]
     Active Substance: LEVOFLOXACIN
     Indication: Abdominal pain upper
     Dates: start: 20220730, end: 20220730

REACTIONS (2)
  - Tendon disorder [None]
  - Arthropathy [None]

NARRATIVE: CASE EVENT DATE: 20220730
